FAERS Safety Report 4521835-0 (Version None)
Quarter: 2004Q4

REPORT INFORMATION
  Report Type: 
  Country: None (occurrence: None)
  Receive Date: 20041206
  Receipt Date: 20041129
  Transmission Date: 20050328
  Serious: Yes (Death)
  Sender: FDA-Public Use
  Company Number: 2004US001454

PATIENT
  Age: 55 Year
  Sex: Male
  Weight: 64.9 kg

DRUGS (4)
  1. PROGRAF [Suspect]
     Indication: PROPHYLAXIS AGAINST TRANSPLANT REJECTION
     Dosage: ORAL
     Route: 048
     Dates: start: 20040617
  2. PEPCID [Concomitant]
  3. BACTRIM [Concomitant]
  4. ENALAPRIL (ENALAPRIL) [Concomitant]

REACTIONS (2)
  - METASTATIC NEOPLASM [None]
  - RENAL CELL CARCINOMA STAGE UNSPECIFIED [None]
